FAERS Safety Report 13873046 (Version 2)
Quarter: 2017Q4

REPORT INFORMATION
  Report Type: Spontaneous
  Country: IL (occurrence: IL)
  Receive Date: 20170816
  Receipt Date: 20171010
  Transmission Date: 20180320
  Serious: Yes (Hospitalization, Other)
  Sender: FDA-Public Use
  Company Number: IL-B.I. PHARMACEUTICALS,INC./RIDGEFIELD-2017-BI-045119

PATIENT
  Sex: Female
  Weight: 90 kg

DRUGS (1)
  1. JARDIANCE [Suspect]
     Active Substance: EMPAGLIFLOZIN
     Indication: PRODUCT USED FOR UNKNOWN INDICATION
     Route: 065
     Dates: start: 20170201, end: 20170418

REACTIONS (4)
  - Decreased appetite [Unknown]
  - Diabetic ketoacidosis [Unknown]
  - Vomiting [Unknown]
  - Nausea [Unknown]
